FAERS Safety Report 6642627-2 (Version None)
Quarter: 2010Q1

REPORT INFORMATION
  Report Type: 
  Country: None (occurrence: None)
  Receive Date: 20100319
  Receipt Date: 20100316
  Transmission Date: 20100710
  Serious: Yes (Other)
  Sender: FDA-Public Use
  Company Number: US-MERCK-1003USA00199

PATIENT

DRUGS (2)
  1. ZOCOR [Suspect]
     Indication: BLOOD CHOLESTEROL
     Route: 048
  2. GENERAL ANESTHESIA (UNSPECIFIED) [Concomitant]
     Route: 065

REACTIONS (2)
  - MYALGIA [None]
  - VOCAL CORD POLYPECTOMY [None]
